FAERS Safety Report 24590206 (Version 4)
Quarter: 2025Q3

REPORT INFORMATION
  Report Type: Report from Study
  Country: CA (occurrence: CA)
  Receive Date: 20241107
  Receipt Date: 20250819
  Transmission Date: 20251021
  Serious: Yes (Death, Hospitalization, Other)
  Sender: ABBVIE
  Company Number: CA-ABBVIE-5989601

PATIENT
  Age: 65 Year
  Sex: Male
  Weight: 79 kg

DRUGS (14)
  1. RINVOQ [Suspect]
     Active Substance: UPADACITINIB
     Indication: Dermatitis atopic
     Dosage: FORM STRENGTH: 15 MILLIGRAM
     Route: 048
     Dates: start: 20230829
  2. RINVOQ [Suspect]
     Active Substance: UPADACITINIB
     Indication: Dermatitis atopic
     Route: 048
  3. PEG 3350 [Concomitant]
     Active Substance: POLYETHYLENE GLYCOL 3350
     Indication: Product used for unknown indication
  4. METAMUCIL [Concomitant]
     Active Substance: PLANTAGO SEED
     Indication: Product used for unknown indication
  5. SYNTHROID [Concomitant]
     Active Substance: LEVOTHYROXINE SODIUM
     Indication: Product used for unknown indication
  6. PANTOPRAZOLE [Concomitant]
     Active Substance: PANTOPRAZOLE
     Indication: Product used for unknown indication
  7. EZETIMIBE [Concomitant]
     Active Substance: EZETIMIBE
     Indication: Product used for unknown indication
  8. CYCLOBENZAPRINE [Concomitant]
     Active Substance: CYCLOBENZAPRINE
     Indication: Product used for unknown indication
  9. PERINDOPRIL [Concomitant]
     Active Substance: PERINDOPRIL
     Indication: Hypertension
     Route: 048
  10. ATORVASTATIN [Concomitant]
     Active Substance: ATORVASTATIN
     Indication: Hyperlipidaemia
     Route: 048
  11. VITAMIN D3 [Concomitant]
     Active Substance: CHOLECALCIFEROL
     Indication: Product used for unknown indication
  12. ACETAMINOPHEN [Concomitant]
     Active Substance: ACETAMINOPHEN
     Indication: Product used for unknown indication
  13. ASPIRIN [Concomitant]
     Active Substance: ASPIRIN
     Indication: Product used for unknown indication
     Route: 048
  14. LEVOTHYROXINE [Concomitant]
     Active Substance: LEVOTHYROXINE
     Indication: Hypothyroidism
     Route: 048

REACTIONS (22)
  - Ischaemic cerebral infarction [Fatal]
  - Urinary retention [Unknown]
  - Nervous system disorder [Not Recovered/Not Resolved]
  - Spinal claudication [Not Recovered/Not Resolved]
  - Meningitis [Not Recovered/Not Resolved]
  - Back pain [Not Recovered/Not Resolved]
  - Dyschezia [Unknown]
  - Spinal stenosis [Not Recovered/Not Resolved]
  - Tracheostomy [Unknown]
  - Infection [Fatal]
  - Respiratory failure [Unknown]
  - Purulence [Unknown]
  - Hydrocephalus [Fatal]
  - Ascending flaccid paralysis [Not Recovered/Not Resolved]
  - Blood disorder [Not Recovered/Not Resolved]
  - Bacterial infection [Unknown]
  - Parvimonas micra infection [Unknown]
  - Gram stain negative [Unknown]
  - Lumbar puncture [Not Recovered/Not Resolved]
  - Meningeal disorder [Unknown]
  - Diabetic neuropathy [Unknown]
  - Asthenia [Not Recovered/Not Resolved]

NARRATIVE: CASE EVENT DATE: 20240101
